FAERS Safety Report 10173500 (Version 1)
Quarter: 2014Q2

REPORT INFORMATION
  Report Type: Spontaneous
  Country: US (occurrence: None)
  Receive Date: 20140514
  Receipt Date: 20140514
  Transmission Date: 20141212
  Serious: Yes (Hospitalization)
  Sender: FDA-Public Use
  Company Number: None

PATIENT
  Age: 55 Year
  Sex: Female

DRUGS (8)
  1. BORTEZOMIB [Suspect]
     Indication: NEOPLASM MALIGNANT
     Dosage: 1.7 MG/M2, EVERY MON/WED/FRI, SC
     Route: 058
     Dates: start: 20140331, end: 20140401
  2. ACETAMINOPHEN [Concomitant]
  3. ALBUTEROL [Concomitant]
  4. DEXAMETHASONE [Concomitant]
  5. DULOXETINE [Concomitant]
  6. INSULIN [Concomitant]
  7. INSULIN GLARGINE [Concomitant]
  8. OXYCODONE [Concomitant]

REACTIONS (1)
  - Polyneuropathy [None]
